FAERS Safety Report 5124708-8 (Version None)
Quarter: 2006Q4

REPORT INFORMATION
  Report Type: 
  Country: None (occurrence: None)
  Receive Date: 20061011
  Receipt Date: 20060920
  Transmission Date: 20070319
  Serious: Yes (Hospitalization, Other)
  Sender: FDA-Public Use
  Company Number: PHBS2006JP14719

PATIENT
  Age: 26 Year
  Sex: Female

DRUGS (4)
  1. CYCLOSPORINE [Suspect]
     Indication: RENAL TRANSPLANT
     Route: 048
  2. SIMULECT [Suspect]
     Indication: RENAL TRANSPLANT
     Route: 042
  3. STEROIDS NOS [Suspect]
     Indication: RENAL TRANSPLANT
     Route: 048
  4. MYCOPHENOLATE MOFETIL [Suspect]
     Indication: RENAL TRANSPLANT
     Route: 048

REACTIONS (5)
  - LYMPHADENECTOMY [None]
  - LYMPHADENOPATHY [None]
  - MASS [None]
  - PAPILLARY THYROID CANCER [None]
  - THYROIDECTOMY [None]
